FAERS Safety Report 7539187-0 (Version None)
Quarter: 2011Q2

REPORT INFORMATION
  Report Type: 
  Country: None (occurrence: None)
  Receive Date: 20110610
  Receipt Date: 20110531
  Transmission Date: 20111010
  Serious: Yes (Other)
  Sender: FDA-Public Use
  Company Number: PHFR2011GB03379

PATIENT
  Sex: Female

DRUGS (1)
  1. CLOZAPINE [Suspect]
     Indication: SCHIZOPHRENIA
     Dosage: 325 MG, QD
     Route: 048
     Dates: start: 20040723

REACTIONS (4)
  - WHITE BLOOD CELL COUNT INCREASED [None]
  - DISORIENTATION [None]
  - HYPOTENSION [None]
  - CONFUSIONAL STATE [None]
